FAERS Safety Report 6565255-6 (Version None)
Quarter: 2010Q1

REPORT INFORMATION
  Report Type: 
  Country: None (occurrence: None)
  Receive Date: 20100201
  Receipt Date: 20100127
  Transmission Date: 20100710
  Serious: Yes (Death)
  Sender: FDA-Public Use
  Company Number: US-ELI_LILLY_AND_COMPANY-US200912002820

PATIENT
  Sex: Male
  Weight: 75.283 kg

DRUGS (16)
  1. ALIMTA [Suspect]
     Indication: NON-SMALL CELL LUNG CANCER
     Dosage: UNK, UNK
     Dates: start: 20090309, end: 20090511
  2. MORPHINE SULFATE [Concomitant]
     Indication: PAIN
     Dosage: 1.5 ML, AS NEEDED
     Route: 060
     Dates: start: 20081201, end: 20090601
  3. NASAL SALINE [Concomitant]
     Dosage: UNK, AS NEEDED
     Route: 045
  4. ALBUTEROL [Concomitant]
     Indication: CHRONIC OBSTRUCTIVE PULMONARY DISEASE
     Dosage: 2 D/F, EVERY 4 HRS
     Route: 055
  5. ADVAIR DISKUS 100/50 [Concomitant]
     Indication: CHRONIC OBSTRUCTIVE PULMONARY DISEASE
     Dosage: 1 D/F, 2/D
     Route: 055
  6. SPIRIVA [Concomitant]
     Indication: CHRONIC OBSTRUCTIVE PULMONARY DISEASE
     Dosage: 1 D/F, DAILY (1/D)
  7. ALBUTEROL [Concomitant]
     Dosage: UNK, AS NEEDED
     Route: 055
  8. MULTI-VITAMIN [Concomitant]
     Dosage: 1 D/F, DAILY (1/D)
     Route: 048
  9. METHADONE HYDROCHLORIDE [Concomitant]
     Dosage: 10 MG, 2/D
  10. MIRALAX [Concomitant]
     Dosage: UNK, DAILY (1/D)
     Route: 048
  11. THEOPHYLLINE [Concomitant]
     Indication: CHRONIC OBSTRUCTIVE PULMONARY DISEASE
     Dosage: 300 MG, 2/D
     Route: 048
  12. DEXAMETHASONE [Concomitant]
     Dosage: 4 MG, OTHER
     Route: 048
  13. BENADRYL [Concomitant]
     Dosage: 25 MG, OTHER
  14. PREDNISONE [Concomitant]
     Dosage: 20 MG, OTHER
  15. LEVAQUIN [Concomitant]
     Dosage: 500 MG, OTHER
     Dates: start: 20090504, end: 20090512
  16. OXYGEN [Concomitant]

REACTIONS (4)
  - CANDIDIASIS [None]
  - MALIGNANT NEOPLASM PROGRESSION [None]
  - RESPIRATORY FAILURE [None]
  - URTICARIA [None]
